FAERS Safety Report 21678137 (Version 1)
Quarter: 2022Q4

REPORT INFORMATION
  Report Type: Spontaneous
  Country: CZ (occurrence: CZ)
  Receive Date: 20221203
  Receipt Date: 20221203
  Transmission Date: 20230113
  Serious: Yes (Life-Threatening, Hospitalization, Other)
  Sender: FDA-Public Use
  Company Number: None

PATIENT
  Age: 15 Year
  Sex: Female

DRUGS (7)
  1. IBUPROFEN [Suspect]
     Active Substance: IBUPROFEN
     Indication: Product used for unknown indication
     Dosage: UNIT DOSE :  6000 MG
     Route: 065
     Dates: start: 20200828, end: 20200828
  2. CHLOROXINE [Suspect]
     Active Substance: CHLOROXINE
     Indication: Product used for unknown indication
     Dosage: 10 TABLETS
     Route: 065
  3. DESLORATADINE [Suspect]
     Active Substance: DESLORATADINE
     Indication: Product used for unknown indication
     Dosage: UNIT DOSE : 50 MG
     Route: 065
     Dates: start: 20200828, end: 20200828
  4. LEVOCETIRIZINE DIHYDROCHLORIDE [Suspect]
     Active Substance: LEVOCETIRIZINE DIHYDROCHLORIDE
     Indication: Product used for unknown indication
     Dosage: UNIT DOSE :  450 MG
     Route: 065
     Dates: start: 20200828, end: 20200828
  5. TELMISARTAN [Suspect]
     Active Substance: TELMISARTAN
     Indication: Product used for unknown indication
     Dosage: UNIT DOSE : 800 MG
     Route: 065
     Dates: start: 20200828, end: 20200828
  6. ACETAMINOPHEN [Suspect]
     Active Substance: ACETAMINOPHEN
     Indication: Product used for unknown indication
     Dosage: UNIT DOSE :  5000 MG
     Route: 065
     Dates: start: 20200828, end: 20200828
  7. AMLODIPINE\BISOPROLOL [Suspect]
     Active Substance: AMLODIPINE\BISOPROLOL
     Indication: Product used for unknown indication
     Dosage: 5 MG BISOPROLOL-FUMARATE + 10 MG AMLODIPIN IN EACH TABLET, UNIT DOSE : 10 DF
     Route: 065
     Dates: start: 20200828, end: 20200828

REACTIONS (2)
  - Intentional overdose [Unknown]
  - Suicide attempt [Unknown]

NARRATIVE: CASE EVENT DATE: 20200828
